FAERS Safety Report 20913991 (Version 1)
Quarter: 2022Q2

REPORT INFORMATION
  Report Type: Spontaneous
  Country: TR (occurrence: TR)
  Receive Date: 20220604
  Receipt Date: 20220604
  Transmission Date: 20220721
  Serious: Yes (Hospitalization, Other)
  Sender: FDA-Public Use
  Company Number: TR-MLMSERVICE-20220527-3584161-1

PATIENT
  Age: 64 Year
  Sex: Male

DRUGS (6)
  1. TIGECYCLINE [Suspect]
     Active Substance: TIGECYCLINE
     Indication: Acinetobacter infection
     Dosage: LOADING DOSE
  2. COLISTIN SULFATE [Suspect]
     Active Substance: COLISTIN SULFATE
     Indication: Acinetobacter infection
     Dosage: COLOMYCIN 150 MG INHALER, STRENGTH: 150 MG
     Route: 055
  3. PIPERACILLIN SODIUM\TAZOBACTAM SODIUM [Suspect]
     Active Substance: PIPERACILLIN SODIUM\TAZOBACTAM SODIUM
     Indication: Urinary tract infection
  4. MEROPENEM [Suspect]
     Active Substance: MEROPENEM
     Indication: Acinetobacter infection
     Dosage: STRENGTH: 1 G
  5. CLARITHROMYCIN [Suspect]
     Active Substance: CLARITHROMYCIN
     Indication: Pneumonia aspiration
  6. ENOXAPARIN [Concomitant]
     Active Substance: ENOXAPARIN
     Indication: Ischaemic stroke
     Dosage: 0.6 CC 2X1/DAY
     Route: 058

REACTIONS (5)
  - Pyuria [Unknown]
  - Urinary tract infection fungal [Unknown]
  - Proteinuria [Unknown]
  - Haematuria [Unknown]
  - Trichosporon infection [Unknown]
